FAERS Safety Report 14118722 (Version 2)
Quarter: 2018Q3

REPORT INFORMATION
  Report Type: Spontaneous
  Country: US (occurrence: US)
  Receive Date: 20171023
  Receipt Date: 20180924
  Transmission Date: 20181010
  Serious: No
  Sender: FDA-Public Use
  Company Number: US-ALLERGAN-1714736US

PATIENT
  Sex: Female
  Weight: 47.17 kg

DRUGS (2)
  1. LINZESS [Suspect]
     Active Substance: LINACLOTIDE
     Indication: IRRITABLE BOWEL SYNDROME
     Dosage: 145 ?G, QD
     Route: 048
     Dates: start: 201707
  2. LINZESS [Suspect]
     Active Substance: LINACLOTIDE
     Indication: CONSTIPATION
     Dosage: 145 ?G, PRN
     Route: 048

REACTIONS (10)
  - Infrequent bowel movements [Not Recovered/Not Resolved]
  - Abdominal distension [Unknown]
  - Diarrhoea [Unknown]
  - Weight increased [Unknown]
  - Inappropriate schedule of drug administration [Unknown]
  - Drug dose omission [Unknown]
  - Eructation [Not Recovered/Not Resolved]
  - Abdominal discomfort [Recovering/Resolving]
  - Anal incontinence [Unknown]
  - Constipation [Unknown]

NARRATIVE: CASE EVENT DATE: 2017
